FAERS Safety Report 19490756 (Version 3)
Quarter: 2021Q3

REPORT INFORMATION
  Report Type: Spontaneous
  Country: US (occurrence: US)
  Receive Date: 20210705
  Receipt Date: 20210817
  Transmission Date: 20211014
  Serious: No
  Sender: FDA-Public Use
  Company Number: US-SAGE-2021SAGE000065

PATIENT
  Age: 29 Year
  Sex: Female

DRUGS (5)
  1. ZULRESSO [Suspect]
     Active Substance: BREXANOLONE
     Dosage: 100 ML, 9.8 ML/HR,BAG 4 RAN ? 11 HOURS AND 15 MINS
     Route: 042
     Dates: start: 20200430, end: 20200430
  2. ZULRESSO [Suspect]
     Active Substance: BREXANOLONE
     Indication: PERINATAL DEPRESSION
     Dosage: 100 ML, 3.3 ML/HR,BAG 1 RAN ? 14 HOUR
     Route: 042
     Dates: start: 20200428, end: 20200429
  3. ZULRESSO [Suspect]
     Active Substance: BREXANOLONE
     Dosage: 100 ML, 9.8 ML/HR,BAG 3 RAN? 10 HOURS AND 07 MINS
     Route: 042
     Dates: start: 20200429, end: 20200430
  4. ZULRESSO [Suspect]
     Active Substance: BREXANOLONE
     Dosage: 100 ML, 6.5 ML/HR,BAG 2 RAN?13 HOURS AND 36 MINS
     Route: 042
     Dates: start: 20200429, end: 20200429
  5. ZULRESSO [Suspect]
     Active Substance: BREXANOLONE
     Dosage: 100 ML (13 ML WASTED), 9.8 ML/HR,BAG 5 RAN? 12 HOURS AND 45 MINS
     Route: 042
     Dates: start: 20200430, end: 20200501

REACTIONS (2)
  - Medication error [Recovered/Resolved]
  - Product administration error [Recovered/Resolved]

NARRATIVE: CASE EVENT DATE: 20200428
